FAERS Safety Report 21118544 (Version 1)
Quarter: 2022Q3

REPORT INFORMATION
  Report Type: Spontaneous
  Country: CA (occurrence: CA)
  Receive Date: 20220722
  Receipt Date: 20220722
  Transmission Date: 20221027
  Serious: Yes (Disabling)
  Sender: FDA-Public Use
  Company Number: None

PATIENT
  Age: 17 Year
  Sex: Male
  Weight: 82 kg

DRUGS (10)
  1. TACROLIMUS [Suspect]
     Active Substance: TACROLIMUS
     Indication: Dermatitis atopic
     Dosage: 1 EVERY 1 DAYS, ROUTE OF ADMINISTRATION: TOPICAL
  2. UPADACITINIB [Suspect]
     Active Substance: UPADACITINIB
     Indication: Dermatitis atopic
     Dosage: 1 EVERY 1 DAYS
     Route: 048
  3. SALICYLIC ACID [Concomitant]
     Active Substance: SALICYLIC ACID
     Indication: Dermatitis atopic
     Dosage: TOPICAL
  4. BUPROPION HYDROCHLORIDE [Concomitant]
     Active Substance: BUPROPION HYDROCHLORIDE
     Indication: Depression
     Dosage: 1 EVERY 1 DAY
  5. CETIRIZINE [Concomitant]
     Active Substance: CETIRIZINE HYDROCHLORIDE
     Indication: Dermatitis atopic
  6. EUCERIN [Concomitant]
     Active Substance: ENSULIZOLE\EUCERIN\OCTINOXATE\OCTISALATE\TITANIUM DIOXIDE\ZINC OXIDE
     Indication: Dry skin prophylaxis
     Dosage: LOTION (NOT FOR OPHTHALMIC USE), TOPICAL
  7. FINACEA [Concomitant]
     Active Substance: AZELAIC ACID
     Indication: Acne
     Dosage: TOPICAL
  8. IMOVANE [Concomitant]
     Active Substance: ZOPICLONE
     Indication: Sleep disorder due to a general medical condition
  9. MOMETASONE FUROATE [Concomitant]
     Active Substance: MOMETASONE FUROATE
     Indication: Dermatitis atopic
     Dosage: LOTION (NOT FOR OPHTHALMIC USE), TOPICAL
  10. PREDNISOLONE ACETATE [Concomitant]
     Active Substance: PREDNISOLONE ACETATE
     Indication: Cataract
     Dosage: OPHTHALMIC

REACTIONS (2)
  - Blindness [Not Recovered/Not Resolved]
  - Glaucoma [Not Recovered/Not Resolved]
